FAERS Safety Report 5345510-8 (Version None)
Quarter: 2007Q2

REPORT INFORMATION
  Report Type: 
  Country: None (occurrence: None)
  Receive Date: 20070605
  Receipt Date: 20070525
  Transmission Date: 20071010
  Serious: Yes (Death, Other)
  Sender: FDA-Public Use
  Company Number: US-ELI_LILLY_AND_COMPANY-US200705006699

PATIENT
  Age: 59 Year
  Sex: Female

DRUGS (2)
  1. FORTEO [Suspect]
     Dosage: UNK, UNK
     Dates: start: 20070101
  2. OXYGEN [Concomitant]

REACTIONS (6)
  - ANOXIC ENCEPHALOPATHY [None]
  - BRAIN DAMAGE [None]
  - BRAIN HYPOXIA [None]
  - CARDIAC ARREST [None]
  - CHRONIC OBSTRUCTIVE PULMONARY DISEASE [None]
  - EMPHYSEMA [None]
